FAERS Safety Report 5911374-4 (Version None)
Quarter: 2008Q4

REPORT INFORMATION
  Report Type: 
  Country: None (occurrence: None)
  Receive Date: 20081007
  Receipt Date: 20080718
  Transmission Date: 20090506
  Serious: No
  Sender: FDA-Public Use
  Company Number: US-ASTRAZENECA-2008UW15078

PATIENT
  Age: 65 Year
  Sex: Female
  Weight: 56.2 kg

DRUGS (2)
  1. ARIMIDEX [Suspect]
     Indication: BREAST CANCER FEMALE
     Route: 048
     Dates: start: 20080701
  2. BLOOD PRESSURE MEDICATIONS [Concomitant]

REACTIONS (1)
  - CONSTIPATION [None]
